FAERS Safety Report 5736478-0 (Version None)
Quarter: 2008Q2

REPORT INFORMATION
  Report Type: 
  Country: None (occurrence: None)
  Receive Date: 20080509
  Receipt Date: 20080509
  Transmission Date: 20081010
  Serious: Yes (Other)
  Sender: FDA-Public Use
  Company Number: None

PATIENT
  Age: 30 Year
  Sex: Male
  Weight: 77.1115 kg

DRUGS (1)
  1. DIGITEK  .25MG TAB  BERTEK PHA [Suspect]
     Indication: ARRHYTHMIA
     Dosage: .25MG TWICE DAILY PO
     Route: 048

REACTIONS (6)
  - CARDIAC FAILURE [None]
  - DIZZINESS [None]
  - HYPOAESTHESIA [None]
  - LETHARGY [None]
  - MUSCLE ATROPHY [None]
  - PHARMACEUTICAL PRODUCT COMPLAINT [None]
